FAERS Safety Report 8515406-9 (Version None)
Quarter: 2012Q3

REPORT INFORMATION
  Report Type: 
  Country: None (occurrence: None)
  Receive Date: 20120717
  Receipt Date: 20120713
  Transmission Date: 20120928
  Serious: No
  Sender: FDA-Public Use
  Company Number: US-B.I. PHARMACEUTICALS,INC./RIDGEFIELD-2012-BP-15718BP

PATIENT
  Sex: Male

DRUGS (8)
  1. POTASSIUM CHLORIDE [Concomitant]
     Dosage: 10 MEQ
     Route: 048
  2. ASPIRIN [Concomitant]
     Dosage: 81 MG
     Route: 048
  3. METOPROLOL TARTRATE [Concomitant]
     Indication: BLOOD PRESSURE
     Dosage: 50 MG
     Route: 048
  4. TERAZOSIN HCL [Concomitant]
  5. PRADAXA [Suspect]
     Indication: ATRIAL FIBRILLATION
     Dosage: 300 MG
     Route: 048
     Dates: start: 20120220, end: 20120401
  6. FOLIC ACID [Concomitant]
  7. ZOLOFT [Concomitant]
     Dosage: 50 MG
     Route: 048
  8. PRADAXA [Suspect]
     Dosage: 150 MG
     Route: 048
     Dates: start: 20120401

REACTIONS (3)
  - HYPERTENSION [None]
  - CARDIOVERSION [None]
  - CARDIAC DISORDER [None]
